FAERS Safety Report 5872700-8 (Version None)
Quarter: 2008Q3

REPORT INFORMATION
  Report Type: 
  Country: None (occurrence: None)
  Receive Date: 20080905
  Receipt Date: 20080824
  Transmission Date: 20090109
  Serious: Yes (Other)
  Sender: FDA-Public Use
  Company Number: US-PFIZER INC-2008070503

PATIENT
  Sex: Female

DRUGS (2)
  1. LYRICA [Suspect]
     Indication: NEUROPATHY PERIPHERAL
  2. CELEBREX [Suspect]
     Indication: BACK INJURY

REACTIONS (12)
  - ACTIVITIES OF DAILY LIVING IMPAIRED [None]
  - APATHY [None]
  - BACK INJURY [None]
  - BACK PAIN [None]
  - CRYING [None]
  - DIARRHOEA [None]
  - HYPERHIDROSIS [None]
  - HYPOAESTHESIA ORAL [None]
  - INSOMNIA [None]
  - MAJOR DEPRESSION [None]
  - STRESS ULCER [None]
  - WEIGHT DECREASED [None]
